FAERS Safety Report 9128999 (Version 1)
Quarter: 2013Q1

REPORT INFORMATION
  Report Type: Spontaneous
  Country: IT (occurrence: IT)
  Receive Date: 20130228
  Receipt Date: 20130228
  Transmission Date: 20140127
  Serious: Yes (Life-Threatening, Hospitalization)
  Sender: FDA-Public Use
  Company Number: IT-ROCHE-1195680

PATIENT
  Age: 51 Year
  Sex: Female
  Weight: 70 kg

DRUGS (2)
  1. XELODA [Suspect]
     Indication: COLON NEOPLASM
     Route: 048
     Dates: start: 20130131, end: 20130211
  2. OXALIPLATIN [Interacting]
     Indication: COLON NEOPLASM
     Route: 042
     Dates: start: 20130130, end: 20130130

REACTIONS (7)
  - Drug interaction [Unknown]
  - Diarrhoea [Recovering/Resolving]
  - Mucosal inflammation [Recovering/Resolving]
  - Neutropenia [Recovering/Resolving]
  - Thrombocytopenia [Recovering/Resolving]
  - Vomiting [Recovering/Resolving]
  - Pyrexia [Recovering/Resolving]
